FAERS Safety Report 10042186 (Version 1)
Quarter: 2014Q1

REPORT INFORMATION
  Report Type: Spontaneous
  Country: US (occurrence: US)
  Receive Date: 20140327
  Receipt Date: 20140327
  Transmission Date: 20141002
  Serious: Yes (Hospitalization)
  Sender: FDA-Public Use
  Company Number: US-GLAXOSMITHKLINE-A1066314A

PATIENT
  Age: 75 Year
  Sex: Female

DRUGS (4)
  1. ADVAIR HFA [Suspect]
     Indication: LUNG DISORDER
     Dosage: 1PUFF TWICE PER DAY
     Route: 055
  2. FLONASE [Suspect]
     Indication: PRODUCT USED FOR UNKNOWN INDICATION
     Dosage: 1SPR TWICE PER DAY
     Route: 045
  3. VENTOLIN [Suspect]
     Indication: LUNG DISORDER
     Dosage: 2PUFF AS REQUIRED
     Route: 055
  4. WATER PILL [Suspect]
     Indication: PRODUCT USED FOR UNKNOWN INDICATION
     Route: 065

REACTIONS (10)
  - Cardiac operation [Unknown]
  - Abdominal operation [Unknown]
  - Heart injury [Unknown]
  - Heart valve operation [Unknown]
  - Surgery [Unknown]
  - Lung disorder [Unknown]
  - Sputum increased [Unknown]
  - Wheezing [Unknown]
  - Memory impairment [Not Recovered/Not Resolved]
  - Disturbance in attention [Not Recovered/Not Resolved]
